FAERS Safety Report 14559240 (Version 1)
Quarter: 2018Q1

REPORT INFORMATION
  Report Type: Report from Study
  Country: US (occurrence: US)
  Receive Date: 20180221
  Receipt Date: 20180221
  Transmission Date: 20180509
  Serious: Yes (Hospitalization, Other)
  Sender: FDA-Public Use
  Company Number: US-MYLANLABS-2018M1011590

PATIENT

DRUGS (3)
  1. MELPHALAN HYDROCHLORIDE FOR INJECTION [Suspect]
     Active Substance: MELPHALAN HYDROCHLORIDE
     Indication: BONE MARROW CONDITIONING REGIMEN
     Dosage: 200 MG/M2, TWO DAYS PRIOR TO THE TRANSPLANTATION
     Route: 041
  2. DEXAMETHASONE. [Concomitant]
     Active Substance: DEXAMETHASONE
     Indication: PROPHYLAXIS OF NAUSEA AND VOMITING
     Dosage: 20 MG
     Route: 042
  3. BORTEZOMIB [Suspect]
     Active Substance: BORTEZOMIB
     Indication: BONE MARROW CONDITIONING REGIMEN
     Dosage: ON DAYS ONE AND FOUR PRIOR TO THE TRANSPLANTATION
     Route: 041

REACTIONS (2)
  - Seizure [Unknown]
  - Gastrointestinal toxicity [Unknown]
